FAERS Safety Report 5311222-X (Version None)
Quarter: 2007Q2

REPORT INFORMATION
  Report Type: 
  Country: None (occurrence: None)
  Receive Date: 20070430
  Receipt Date: 20070424
  Transmission Date: 20071010
  Serious: Yes (Other)
  Sender: FDA-Public Use
  Company Number: PHEH2007US04045

PATIENT

DRUGS (1)
  1. ZELNORM [Suspect]
     Dosage: UNK

REACTIONS (4)
  - CATHETERISATION CARDIAC [None]
  - CHEST PAIN [None]
  - CORONARY ARTERY DISEASE [None]
  - MITRAL VALVE INCOMPETENCE [None]
